FAERS Safety Report 6216480-5 (Version None)
Quarter: 2009Q2

REPORT INFORMATION
  Report Type: 
  Country: None (occurrence: None)
  Receive Date: 20090605
  Receipt Date: 20090601
  Transmission Date: 20091009
  Serious: Yes (Hospitalization, Disabling)
  Sender: FDA-Public Use
  Company Number: US-MERCK-0905USA03676

PATIENT
  Age: 52 Year
  Sex: Female

DRUGS (8)
  1. JANUMET [Suspect]
     Indication: DIABETES MELLITUS
     Route: 048
     Dates: start: 20080418, end: 20090429
  2. JANUMET [Suspect]
     Route: 048
     Dates: start: 20090430, end: 20090501
  3. WELLBUTRIN [Concomitant]
     Indication: DEPRESSION
     Route: 065
  4. BENICAR HCT [Concomitant]
     Indication: HYPERTENSION
     Route: 065
  5. BENICAR HCT [Concomitant]
     Indication: FLUID RETENTION
     Route: 065
  6. LIPITOR [Concomitant]
     Indication: BLOOD CHOLESTEROL INCREASED
     Route: 065
  7. LIPITOR [Concomitant]
     Indication: BLOOD TRIGLYCERIDES INCREASED
     Route: 065
  8. TRILIPIX [Concomitant]
     Indication: BLOOD TRIGLYCERIDES INCREASED
     Route: 065

REACTIONS (4)
  - GASTRITIS [None]
  - INAPPROPRIATE SCHEDULE OF DRUG ADMINISTRATION [None]
  - PANCREATITIS [None]
  - TOOTH INFECTION [None]
